FAERS Safety Report 5736119-2 (Version None)
Quarter: 2008Q2

REPORT INFORMATION
  Report Type: 
  Country: None (occurrence: None)
  Receive Date: 20080509
  Receipt Date: 20080429
  Transmission Date: 20081010
  Serious: Yes (Death, Life-Threatening, Hospitalization)
  Sender: FDA-Public Use
  Company Number: 2008AL002744

PATIENT
  Age: 71 Year
  Sex: Male

DRUGS (8)
  1. DIGOXIN [Suspect]
     Indication: CARDIAC PACEMAKER REVISION
     Dosage: 0.125 MG, QD, PO
     Route: 048
     Dates: start: 20060101, end: 20080410
  2. DIGOXIN [Suspect]
     Indication: IMPLANTABLE DEFIBRILLATOR INSERTION
     Dosage: 0.125 MG, QD, PO
     Route: 048
     Dates: start: 20060101, end: 20080410
  3. AMIODARONE [Concomitant]
  4. COREG [Concomitant]
  5. PREDNISONE TAB [Concomitant]
  6. COUMADIN [Concomitant]
  7. LASIX [Concomitant]
  8. LIPITOR [Concomitant]

REACTIONS (7)
  - ASTHENIA [None]
  - CARDIAC FAILURE CONGESTIVE [None]
  - IMPLANTABLE DEFIBRILLATOR MALFUNCTION [None]
  - MALNUTRITION [None]
  - PULMONARY OEDEMA [None]
  - SMALL CELL LUNG CANCER STAGE UNSPECIFIED [None]
  - THERAPEUTIC AGENT TOXICITY [None]
